FAERS Safety Report 10549527 (Version 1)
Quarter: 2014Q4

REPORT INFORMATION
  Report Type: Spontaneous
  Country: US (occurrence: None)
  Receive Date: 20141020
  Receipt Date: 20141020
  Transmission Date: 20150529
  Serious: No
  Sender: FDA-Public Use
  Company Number: AEGR000669

PATIENT
  Age: 53 Year
  Sex: Male
  Weight: 74.8 kg

DRUGS (7)
  1. ASPIRIN (ACETYLSALICYLIC ACID) [Concomitant]
     Active Substance: ASPIRIN
  2. METOPROLOL [Concomitant]
     Active Substance: METOPROLOL
  3. MULTIVITAMIN (VITAMINS NOS) [Concomitant]
     Active Substance: VITAMINS
  4. VITAMIN D (COLECALCIFEROL) [Concomitant]
  5. COQ10 (UBIDECARENONE) [Concomitant]
     Active Substance: UBIDECARENONE
  6. JUXTAPID [Suspect]
     Active Substance: LOMITAPIDE MESYLATE
     Indication: BLOOD CHOLESTEROL INCREASED
     Route: 048
     Dates: start: 2014, end: 201407
  7. FLAXSEED [Concomitant]
     Active Substance: FLAX SEED

REACTIONS (2)
  - Off label use [None]
  - Drug ineffective for unapproved indication [None]

NARRATIVE: CASE EVENT DATE: 2014
